FAERS Safety Report 4899965-3 (Version None)
Quarter: 2006Q1

REPORT INFORMATION
  Report Type: 
  Country: None (occurrence: None)
  Receive Date: 20060131
  Receipt Date: 20060116
  Transmission Date: 20060701
  Serious: Yes (Life-Threatening, Other)
  Sender: FDA-Public Use
  Company Number: 24219

PATIENT
  Age: 64 Year
  Sex: Male

DRUGS (2)
  1. LEUCOVORIN CALCIUM [Suspect]
     Indication: COLON CANCER METASTATIC
     Dates: start: 20060110
  2. REFER TO ATTACHMENT A03200600205 FOR ADDITIONAL DETAILS. [Concomitant]

REACTIONS (5)
  - CONVULSION [None]
  - INCONTINENCE [None]
  - INFUSION RELATED REACTION [None]
  - LOSS OF CONSCIOUSNESS [None]
  - RESPIRATORY RATE INCREASED [None]
